FAERS Safety Report 13050455 (Version 1)
Quarter: 2016Q4

REPORT INFORMATION
  Report Type: Other
  Country: GB (occurrence: GB)
  Receive Date: 20161221
  Receipt Date: 20161221
  Transmission Date: 20170207
  Serious: Yes (Hospitalization, Other)
  Sender: FDA-Public Use
  Company Number: GB-WARNER CHILCOTT, LLC-1061101

PATIENT
  Age: 53 Year
  Sex: Male
  Weight: 120.27 kg

DRUGS (6)
  1. CO-AMOXICLAV [Concomitant]
     Active Substance: AMOXICILLIN\CLAVULANIC ACID
  2. COCODAMOL [Concomitant]
     Active Substance: ACETAMINOPHEN\CODEINE PHOSPHATE
  3. METFORMIN [Suspect]
     Active Substance: METFORMIN HYDROCHLORIDE
     Route: 048
  4. DAPAGLIFLOZIN [Concomitant]
     Active Substance: DAPAGLIFLOZIN
  5. ATORVASTATIN [Suspect]
     Active Substance: ATORVASTATIN
     Route: 048
  6. ASACOL [Suspect]
     Active Substance: MESALAMINE
     Indication: COLITIS ULCERATIVE
     Route: 048

REACTIONS (7)
  - Acute kidney injury [Unknown]
  - Malaise [Unknown]
  - Pyrexia [Unknown]
  - Myalgia [Unknown]
  - Pulse absent [Unknown]
  - Peripheral circulatory failure [Unknown]
  - Diarrhoea [Unknown]

NARRATIVE: CASE EVENT DATE: 20161203
